FAERS Safety Report 18686528 (Version 3)
Quarter: 2021Q1

REPORT INFORMATION
  Report Type: Spontaneous
  Country: US (occurrence: US)
  Receive Date: 20201230
  Receipt Date: 20210126
  Transmission Date: 20210419
  Serious: Yes (Disabling, Other)
  Sender: FDA-Public Use
  Company Number: US-JNJFOC-20201239447

PATIENT
  Age: 52 Year
  Sex: Female

DRUGS (4)
  1. OPSUMIT [Suspect]
     Active Substance: MACITENTAN
     Indication: PULMONARY ARTERIAL HYPERTENSION
     Route: 048
     Dates: start: 20200717
  2. ELIQUIS [Concomitant]
     Active Substance: APIXABAN
  3. UPTRAVI [Suspect]
     Active Substance: SELEXIPAG
     Indication: PULMONARY ARTERIAL HYPERTENSION
     Route: 048
     Dates: start: 20201124
  4. ASPIRIN [ACETYLSALICYLIC ACID] [Concomitant]
     Active Substance: ASPIRIN

REACTIONS (7)
  - Paraesthesia [Unknown]
  - Muscle spasms [Unknown]
  - Infection [Unknown]
  - Raynaud^s phenomenon [Unknown]
  - Poor peripheral circulation [Unknown]
  - Cyanosis [Not Recovered/Not Resolved]
  - Extremity necrosis [Unknown]

NARRATIVE: CASE EVENT DATE: 20201217
